FAERS Safety Report 11222885 (Version 1)
Quarter: 2015Q2

REPORT INFORMATION
  Report Type: Spontaneous
  Country: US (occurrence: US)
  Receive Date: 20150626
  Receipt Date: 20150626
  Transmission Date: 20150821
  Serious: Yes (Other)
  Sender: FDA-Public Use
  Company Number: US-BAYER-2015-359873

PATIENT
  Age: 27 Year
  Sex: Female
  Weight: 127 kg

DRUGS (16)
  1. CIPRO [Suspect]
     Active Substance: CIPROFLOXACIN HYDROCHLORIDE
     Dosage: UNK
  2. LORATADINE. [Concomitant]
     Active Substance: LORATADINE
     Dosage: 5 MG, UNK
  3. PRILOSEC [Concomitant]
     Active Substance: OMEPRAZOLE MAGNESIUM
     Dosage: 40 MG DELAYED RELEASE
  4. XARELTO [Concomitant]
     Active Substance: RIVAROXABAN
     Dosage: 20 MG, UNK
  5. NORCO [Concomitant]
     Active Substance: ACETAMINOPHEN\HYDROCODONE BITARTRATE
     Dosage: 5 MG-325 MG TABLET
  6. DOCUSATE CALCIUM. [Concomitant]
     Active Substance: DOCUSATE CALCIUM
     Dosage: 240 MG, UNK
  7. PROVENTIL [Concomitant]
     Active Substance: ALBUTEROL
     Dosage: 90 ?G MCG/ACTUATION AEROSOL INHALER
  8. ZOFRAN [Concomitant]
     Active Substance: ONDANSETRON HYDROCHLORIDE
     Dosage: 4 MG, UNK
  9. DYAZIDE [Concomitant]
     Active Substance: HYDROCHLOROTHIAZIDE\TRIAMTERENE
     Dosage: 37.5 MG-25 MG
  10. SENNA [Concomitant]
     Active Substance: SENNA LEAF\SENNOSIDES\SENNOSIDES A AND B
     Dosage: 8.6 MG, UNK
  11. AMBIEN [Concomitant]
     Active Substance: ZOLPIDEM TARTRATE
     Dosage: 5 MG, UNK
  12. CRIZOTINIB [Suspect]
     Active Substance: CRIZOTINIB
     Dosage: 250 MG, UNK
     Dates: start: 201307
  13. PROZAC [Concomitant]
     Active Substance: FLUOXETINE HYDROCHLORIDE
     Dosage: 20 MG, UNK
  14. GINSENG [Concomitant]
     Active Substance: ASIAN GINSENG
     Dosage: 100 MG, UNK
  15. WELLBUTRIN [Concomitant]
     Active Substance: BUPROPION HYDROCHLORIDE
     Dosage: 150 MG, QD
  16. XARELTO [Concomitant]
     Active Substance: RIVAROXABAN
     Dosage: 15 MG (42)-20 MG (9) TABLETS

REACTIONS (14)
  - Drug hypersensitivity [None]
  - Diarrhoea [None]
  - Night blindness [None]
  - Dizziness [None]
  - Fatigue [None]
  - Deafness unilateral [None]
  - Amnesia [None]
  - Dyspnoea [None]
  - Pulmonary embolism [None]
  - Confusional state [None]
  - Constipation [None]
  - Oedema peripheral [None]
  - Nausea [None]
  - Peripheral swelling [None]
